FAERS Safety Report 18339346 (Version 1)
Quarter: 2020Q4

REPORT INFORMATION
  Report Type: Spontaneous
  Country: US (occurrence: US)
  Receive Date: 20201002
  Receipt Date: 20201002
  Transmission Date: 20210113
  Serious: No
  Sender: FDA-Public Use
  Company Number: None

PATIENT
  Age: 53 Year
  Sex: Male
  Weight: 78.75 kg

DRUGS (1)
  1. ASSURED INSTANT HAND SANITIZER WITH MOISTURIZERS VITAMIN E AND ALOE [Suspect]
     Active Substance: ALCOHOL
     Indication: COVID-19 PROPHYLAXIS
     Dosage: ?          QUANTITY:3 1;?
     Route: 061
     Dates: start: 20200801, end: 20200814

REACTIONS (4)
  - Disorientation [None]
  - Dizziness [None]
  - Nausea [None]
  - Visual impairment [None]

NARRATIVE: CASE EVENT DATE: 20200814
